FAERS Safety Report 21445945 (Version 1)
Quarter: 2022Q4

REPORT INFORMATION
  Report Type: Spontaneous
  Country: KR (occurrence: KR)
  Receive Date: 20221012
  Receipt Date: 20221012
  Transmission Date: 20230113
  Serious: Yes (Other)
  Sender: FDA-Public Use
  Company Number: KR-ELI_LILLY_AND_COMPANY-KR202210001001

PATIENT
  Age: 69 Year
  Sex: Female

DRUGS (4)
  1. CYMBALTA [Suspect]
     Active Substance: DULOXETINE HYDROCHLORIDE
     Indication: Rotator cuff syndrome
     Dosage: 30 MG, DAILY
     Route: 065
     Dates: start: 20210209
  2. ACETAMINOPHEN\TRAMADOL HYDROCHLORIDE [Suspect]
     Active Substance: ACETAMINOPHEN\TRAMADOL HYDROCHLORIDE
     Indication: Rotator cuff syndrome
     Dosage: 1 DOSAGE FORM, DAILY
     Route: 065
     Dates: start: 20210209
  3. MELOXICAM [Suspect]
     Active Substance: MELOXICAM
     Indication: Rotator cuff syndrome
     Dosage: 1 DOSAGE FORM, DAILY
     Route: 065
     Dates: start: 20210209
  4. MOSAPRIDE CITRATE DIHYDRATE [Concomitant]
     Active Substance: MOSAPRIDE CITRATE DIHYDRATE
     Indication: Product used for unknown indication
     Dosage: 1 DOSAGE FORM, DAILY
     Dates: start: 20210209

REACTIONS (2)
  - Generalised oedema [Recovered/Resolved]
  - Off label use [Unknown]

NARRATIVE: CASE EVENT DATE: 20210209
